FAERS Safety Report 23312354 (Version 1)
Quarter: 2023Q4

REPORT INFORMATION
  Report Type: Spontaneous
  Country: US (occurrence: None)
  Receive Date: 20231218
  Receipt Date: 20231218
  Transmission Date: 20240110
  Serious: Yes (Hospitalization)
  Sender: FDA-Public Use
  Company Number: None

PATIENT
  Age: 39 Year
  Sex: Female

DRUGS (11)
  1. FASENRA [Suspect]
     Active Substance: BENRALIZUMAB
     Dosage: 30MG/ML Q 8 WEEKS SUBCUTANEOUS?
     Route: 058
  2. ELIQUIS [Concomitant]
  3. ADVAIR HFA [Concomitant]
  4. ALBUTEROL HFA INH [Concomitant]
  5. CYCLOBENZAPRINE [Concomitant]
  6. EPIPEN [Concomitant]
     Active Substance: EPINEPHRINE
  7. LEVALBUTEROL [Concomitant]
  8. LORATADINE [Concomitant]
  9. LORAZEPAM [Concomitant]
  10. PANTOPRAZOLE [Concomitant]
  11. PREDNISONE [Concomitant]

REACTIONS (1)
  - Asthma [None]

NARRATIVE: CASE EVENT DATE: 20231105
